FAERS Safety Report 5916549-6 (Version None)
Quarter: 2008Q4

REPORT INFORMATION
  Report Type: 
  Country: None (occurrence: None)
  Receive Date: 20081013
  Receipt Date: 20081002
  Transmission Date: 20090506
  Serious: Yes (Hospitalization)
  Sender: FDA-Public Use
  Company Number: B0540640A

PATIENT
  Age: 80 Year
  Sex: Female

DRUGS (5)
  1. ALLOPURINOL [Suspect]
     Indication: DRUG USE FOR UNKNOWN INDICATION
     Route: 048
     Dates: start: 20080526, end: 20080612
  2. CHLORAMBUCIL [Suspect]
     Indication: DRUG USE FOR UNKNOWN INDICATION
     Dosage: 4MG SEE DOSAGE TEXT
     Route: 048
     Dates: start: 20080526, end: 20080612
  3. KETEK [Concomitant]
     Route: 065
  4. CARBOCISTEINE [Concomitant]
     Route: 065
  5. DOLIPRANE [Concomitant]
     Route: 065

REACTIONS (2)
  - LEUKOCYTOCLASTIC VASCULITIS [None]
  - RASH PRURITIC [None]
